FAERS Safety Report 25897520 (Version 3)
Quarter: 2025Q4

REPORT INFORMATION
  Report Type: Spontaneous
  Country: US (occurrence: None)
  Receive Date: 20251008
  Receipt Date: 20251215
  Transmission Date: 20260117
  Serious: Yes (Other)
  Sender: UCB
  Company Number: US-UCBSA-2025062459

PATIENT
  Age: 64 Year

DRUGS (1)
  1. BIMZELX [Suspect]
     Active Substance: BIMEKIZUMAB-BKZX
     Indication: Hidradenitis
     Dosage: 320 MILLIGRAM, EV 2 WEEKS(QOW) FOR 16 WEEKS (WEEKS 0, 2, 4, 6, 8, 10, 12, 14, AND 16) THEN 1 PEN EVERY 4 WEEKS THEREAFTER

REACTIONS (4)
  - Oesophageal candidiasis [Unknown]
  - Candida infection [Unknown]
  - Hidradenitis [Unknown]
  - Condition aggravated [Unknown]
